FAERS Safety Report 7246768-0 (Version None)
Quarter: 2011Q1

REPORT INFORMATION
  Report Type: 
  Country: None (occurrence: None)
  Receive Date: 20110127
  Receipt Date: 20110120
  Transmission Date: 20110831
  Serious: Yes (Hospitalization, Other)
  Sender: FDA-Public Use
  Company Number: JP-PFIZER INC-2010179708

PATIENT
  Age: 76 Year
  Sex: Female
  Weight: 34.95 kg

DRUGS (4)
  1. PARIET [Concomitant]
     Dosage: 10 MG, 1X/DAY
     Route: 048
  2. MYSLEE [Concomitant]
     Dosage: 5 MG, 1X/DAY
     Route: 048
  3. FOSAMAC [Concomitant]
     Dosage: 35 MG, WEEKLY
     Route: 048
  4. LYRICA [Suspect]
     Indication: NEUROPATHY PERIPHERAL
     Dosage: 75 MG, 1X/DAY
     Route: 048
     Dates: start: 20101130, end: 20101210

REACTIONS (1)
  - LOSS OF CONSCIOUSNESS [None]
